FAERS Safety Report 13680200 (Version 1)
Quarter: 2017Q2

REPORT INFORMATION
  Report Type: Spontaneous
  Country: CN (occurrence: CN)
  Receive Date: 20170622
  Receipt Date: 20170622
  Transmission Date: 20170830
  Serious: Yes (Other)
  Sender: FDA-Public Use
  Company Number: CN-009507513-1706CHN006690

PATIENT
  Age: 28 Year
  Sex: Female
  Weight: 49 kg

DRUGS (2)
  1. SODIUM CHLORIDE. [Concomitant]
     Active Substance: SODIUM CHLORIDE
     Indication: ELECTROLYTE IMBALANCE
     Dosage: 100 ML, QD
     Route: 041
     Dates: start: 20170424, end: 20170425
  2. INVANZ [Suspect]
     Active Substance: ERTAPENEM SODIUM
     Indication: PERITONITIS
     Dosage: 1 G, QD
     Route: 041
     Dates: start: 20170424, end: 20170425

REACTIONS (1)
  - Epilepsy [Recovering/Resolving]

NARRATIVE: CASE EVENT DATE: 20170425
